FAERS Safety Report 5285901-7 (Version None)
Quarter: 2007Q1

REPORT INFORMATION
  Report Type: 
  Country: None (occurrence: None)
  Receive Date: 20070329
  Receipt Date: 20070316
  Transmission Date: 20070707
  Serious: Yes (Hospitalization, Other)
  Sender: FDA-Public Use
  Company Number: MEDI-0005269

PATIENT
  Age: 80 Year
  Sex: Male
  Weight: 76.8393 kg

DRUGS (6)
  1. ETHYOL [Suspect]
     Indication: NEOPLASM MALIGNANT
     Dosage: 250 MG, 5 IN 5 D, INTRAMUSCULAR
     Route: 030
     Dates: start: 20060814, end: 20060905
  2. UNKNOWN CHEMOTHERAPPY DRUG [Concomitant]
  3. INTENSITY-MODULATED RADIATION THERAPY [Concomitant]
  4. ASCORBIC ACID [Concomitant]
  5. TYLENOL [Concomitant]
  6. COMPAZINE [Concomitant]

REACTIONS (8)
  - BLOOD CALCIUM DECREASED [None]
  - BLOOD CHLORIDE DECREASED [None]
  - BLOOD GLUCOSE INCREASED [None]
  - BLOOD POTASSIUM DECREASED [None]
  - BLOOD SODIUM DECREASED [None]
  - BLOOD UREA DECREASED [None]
  - DEHYDRATION [None]
  - LIP SWELLING [None]
